FAERS Safety Report 25948122 (Version 1)
Quarter: 2025Q4

REPORT INFORMATION
  Report Type: Spontaneous
  Country: US (occurrence: US)
  Receive Date: 20251022
  Receipt Date: 20251022
  Transmission Date: 20260118
  Serious: No
  Sender: BAYER HEALTHCARE LLC
  Company Number: US-BAYER-2025A139117

PATIENT
  Age: 84 Year
  Sex: Female

DRUGS (1)
  1. MIRALAX [Suspect]
     Active Substance: POLYETHYLENE GLYCOL 3350
     Indication: Gastrointestinal disorder
     Dosage: 1 DF, QD, SOME DAYS AT NIGHT, SOME DAYS IN THE AFTERNOON
     Route: 048
     Dates: start: 20251017, end: 20251020

REACTIONS (1)
  - Expired product administered [None]

NARRATIVE: CASE EVENT DATE: 20251017
